FAERS Safety Report 13264330 (Version 1)
Quarter: 2017Q1

REPORT INFORMATION
  Report Type: Spontaneous
  Country: US (occurrence: US)
  Receive Date: 20170222
  Receipt Date: 20170222
  Transmission Date: 20170428
  Serious: No
  Sender: FDA-Public Use
  Company Number: None

PATIENT
  Age: 52 Year
  Sex: Female

DRUGS (7)
  1. OPSUMIT [Suspect]
     Active Substance: MACITENTAN
     Indication: PULMONARY EMBOLISM
     Route: 048
     Dates: start: 20170206, end: 20170216
  2. FUROSEMIDE. [Concomitant]
     Active Substance: FUROSEMIDE
  3. WARFARIN [Concomitant]
     Active Substance: WARFARIN
  4. LEVOTHYROXINE. [Concomitant]
     Active Substance: LEVOTHYROXINE
  5. SILDENAFIL. [Concomitant]
     Active Substance: SILDENAFIL
  6. DIGOXIN. [Concomitant]
     Active Substance: DIGOXIN
  7. METFORMIN [Concomitant]
     Active Substance: METFORMIN HYDROCHLORIDE

REACTIONS (6)
  - Discomfort [None]
  - Muscle spasms [None]
  - Pain in extremity [None]
  - Fatigue [None]
  - Headache [None]
  - Gastritis [None]

NARRATIVE: CASE EVENT DATE: 20170216
